FAERS Safety Report 4931525-8 (Version None)
Quarter: 2006Q1

REPORT INFORMATION
  Report Type: 
  Country: None (occurrence: None)
  Receive Date: 20060303
  Receipt Date: 20060222
  Transmission Date: 20060701
  Serious: Yes (Other)
  Sender: FDA-Public Use
  Company Number: PHMT2006CA00758

PATIENT
  Sex: Female

DRUGS (1)
  1. VOLTAREN [Suspect]
     Dates: start: 20050501, end: 20050901

REACTIONS (1)
  - VISUAL DISTURBANCE [None]
